FAERS Safety Report 6376857-4 (Version None)
Quarter: 2009Q3

REPORT INFORMATION
  Report Type: 
  Country: None (occurrence: None)
  Receive Date: 20090925
  Receipt Date: 20090921
  Transmission Date: 20100115
  Serious: Yes (Other)
  Sender: FDA-Public Use
  Company Number: NZ-JNJFOC-20090905422

PATIENT

DRUGS (8)
  1. REMICADE [Suspect]
  2. REMICADE [Suspect]
     Indication: DRUG EXPOSURE DURING PREGNANCY
  3. AZATHIOPRINE [Concomitant]
  4. PENTAZOCINE [Concomitant]
  5. RANITIDINE [Concomitant]
  6. CALCIUM [Concomitant]
  7. SLOW-K [Concomitant]
  8. STEROIDS NOS [Concomitant]

REACTIONS (1)
  - CEREBRAL PALSY [None]
